FAERS Safety Report 16654841 (Version 1)
Quarter: 2019Q3

REPORT INFORMATION
  Report Type: Spontaneous
  Country: US (occurrence: US)
  Receive Date: 20190801
  Receipt Date: 20190801
  Transmission Date: 20191004
  Serious: Yes (Other)
  Sender: FDA-Public Use
  Company Number: US-AUROBINDO-AUR-APL-2019-002794

PATIENT

DRUGS (2)
  1. TEMAZEPAM. [Suspect]
     Active Substance: TEMAZEPAM
     Indication: SLEEP DISORDER
     Dosage: 15 MILLIGRAM, TWO TIMES A DAY
     Route: 065
  2. ALPRAZOLAM. [Suspect]
     Active Substance: ALPRAZOLAM
     Indication: SLEEP DISORDER
     Dosage: 1 MILLIGRAM, 3 TIMES A DAY
     Route: 065

REACTIONS (10)
  - Drug ineffective [Unknown]
  - Product substitution issue [Unknown]
  - Abnormal dreams [Unknown]
  - Depressed mood [Unknown]
  - Drug withdrawal convulsions [Unknown]
  - Panic attack [Unknown]
  - Blood pressure increased [Unknown]
  - Restlessness [Unknown]
  - Anxiety [Unknown]
  - Sleep deficit [Unknown]
